FAERS Safety Report 7832394-9 (Version None)
Quarter: 2011Q4

REPORT INFORMATION
  Report Type: 
  Country: None (occurrence: None)
  Receive Date: 20111022
  Receipt Date: 20111011
  Transmission Date: 20120403
  Serious: Yes (Other)
  Sender: FDA-Public Use
  Company Number: US-BAYER-2011-098512

PATIENT
  Sex: Female

DRUGS (3)
  1. DROSPIRENONE AND ETHINYL ESTRADIOL [Suspect]
     Dosage: UNK
     Dates: start: 20040201, end: 20060901
  2. YAZ [Suspect]
     Dosage: UNK
     Dates: start: 20040201, end: 20060901
  3. YASMIN [Suspect]
     Dosage: UNK
     Dates: start: 20040201, end: 20060901

REACTIONS (4)
  - FEAR [None]
  - CHOLECYSTECTOMY [None]
  - INJURY [None]
  - PAIN [None]
